FAERS Safety Report 20499589 (Version 1)
Quarter: 2022Q1

REPORT INFORMATION
  Report Type: Report from Study
  Country: JP (occurrence: JP)
  Receive Date: 20220222
  Receipt Date: 20220222
  Transmission Date: 20220424
  Serious: Yes (Death, Life-Threatening, Hospitalization)
  Sender: FDA-Public Use
  Company Number: JP-SAKK-2022SA055273AA

PATIENT
  Age: 64 Year
  Sex: Male
  Weight: 68 kg

DRUGS (24)
  1. ISATUXIMAB [Suspect]
     Active Substance: ISATUXIMAB
     Indication: Plasma cell myeloma
     Dosage: 1330 MG, 1X
     Route: 058
     Dates: start: 20220119, end: 20220119
  2. ISATUXIMAB [Suspect]
     Active Substance: ISATUXIMAB
     Dosage: 1400 MG
     Route: 058
     Dates: start: 20210621
  3. POMALIDOMIDE [Suspect]
     Active Substance: POMALIDOMIDE
     Indication: Plasma cell myeloma
     Dosage: 3 MG, QD, DOSE OMISSION: YES
     Route: 048
     Dates: start: 20220105, end: 20220122
  4. POMALIDOMIDE [Suspect]
     Active Substance: POMALIDOMIDE
     Dosage: 3 MG, QD
     Route: 048
     Dates: start: 20210621
  5. DEXAMETHASONE [Suspect]
     Active Substance: DEXAMETHASONE
     Indication: Plasma cell myeloma
     Dosage: 40 MG, QW
     Route: 048
     Dates: start: 20220112, end: 20220119
  6. DEXAMETHASONE [Suspect]
     Active Substance: DEXAMETHASONE
     Dosage: 40 MG, QW
     Route: 048
     Dates: start: 20210621
  7. NEXIUM [Concomitant]
     Active Substance: ESOMEPRAZOLE MAGNESIUM
     Indication: Gastritis prophylaxis
     Dosage: 1 DF, QD
     Route: 048
     Dates: start: 20141219, end: 20220122
  8. ZOVIRAX [Concomitant]
     Active Substance: ACYCLOVIR
     Indication: Infection prophylaxis
     Dosage: 1 DF, QD
     Route: 048
     Dates: start: 20150529, end: 20220122
  9. ASPIRIN [Concomitant]
     Active Substance: ASPIRIN
     Indication: Thrombosis prophylaxis
     Dosage: 1 DF, QD
     Route: 048
     Dates: start: 20151001, end: 20220122
  10. ROSUVASTATIN OD [Concomitant]
     Indication: Dyslipidaemia
     Dosage: 1 DF, QD
     Route: 048
     Dates: start: 20200312, end: 20220122
  11. DILTIAZEM HYDROCHLORIDE [Concomitant]
     Active Substance: DILTIAZEM HYDROCHLORIDE
     Indication: Angina pectoris
     Dosage: 1 DF, QD
     Route: 048
     Dates: start: 20200312, end: 20220122
  12. LOXOPROFEN SODIUM [Concomitant]
     Active Substance: LOXOPROFEN SODIUM
     Indication: Lumbar spinal stenosis
     Dosage: ONE SHEET AT A TIME, PRN
     Route: 061
     Dates: start: 20191010, end: 20220122
  13. CALONAL [Concomitant]
     Active Substance: ACETAMINOPHEN
     Indication: Prophylaxis
     Dosage: TOTAL DAILY DOSE: 800MG/DAY
     Route: 048
     Dates: start: 20211025, end: 20211025
  14. CALONAL [Concomitant]
     Active Substance: ACETAMINOPHEN
     Dosage: TOTAL DAILY DOSE: 800MG/DAY
     Route: 048
     Dates: start: 20211108, end: 20211108
  15. CALONAL [Concomitant]
     Active Substance: ACETAMINOPHEN
     Dosage: TOTAL DAILY DOSE: 800MG/DAY
     Route: 048
     Dates: start: 20211122, end: 20211122
  16. CALONAL [Concomitant]
     Active Substance: ACETAMINOPHEN
     Dosage: TOTAL DAILY DOSE: 800MG/DAY
     Route: 048
     Dates: start: 20211206, end: 20211206
  17. CALONAL [Concomitant]
     Active Substance: ACETAMINOPHEN
     Dosage: TOTAL DAILY DOSE: 800MG/DAY
     Route: 048
     Dates: start: 20220105, end: 20220105
  18. CALONAL [Concomitant]
     Active Substance: ACETAMINOPHEN
     Dosage: TOTAL DAILY DOSE: 800MG/DAY
     Route: 048
     Dates: start: 20220119, end: 20220119
  19. RESTAMIN [DIPHENHYDRAMINE HYDROCHLORIDE] [Concomitant]
     Indication: Prophylaxis
     Dosage: TOTAL DAILY DOSE: 50 MG/DAY
     Route: 048
     Dates: start: 20211025, end: 20211025
  20. RESTAMIN [DIPHENHYDRAMINE HYDROCHLORIDE] [Concomitant]
     Dosage: TOTAL DAILY DOSE: 50 MG/DAY
     Route: 048
     Dates: start: 20211108, end: 20211108
  21. RESTAMIN [DIPHENHYDRAMINE HYDROCHLORIDE] [Concomitant]
     Dosage: TOTAL DAILY DOSE: 50 MG/DAY
     Route: 048
     Dates: start: 20211122, end: 20211122
  22. RESTAMIN [DIPHENHYDRAMINE HYDROCHLORIDE] [Concomitant]
     Dosage: TOTAL DAILY DOSE: 50 MG/DAY
     Route: 048
     Dates: start: 20211206, end: 20211206
  23. RESTAMIN [DIPHENHYDRAMINE HYDROCHLORIDE] [Concomitant]
     Dosage: TOTAL DAILY DOSE: 50 MG/DAY
     Route: 048
     Dates: start: 20220105, end: 20220105
  24. RESTAMIN [DIPHENHYDRAMINE HYDROCHLORIDE] [Concomitant]
     Dosage: TOTAL DAILY DOSE: 50 MG/DAY
     Route: 048
     Dates: start: 20220119, end: 20220119

REACTIONS (1)
  - Meningitis bacterial [Fatal]

NARRATIVE: CASE EVENT DATE: 20220122
